FAERS Safety Report 8030175-7 (Version None)
Quarter: 2011Q4

REPORT INFORMATION
  Report Type: 
  Country: None (occurrence: None)
  Receive Date: 20111130
  Receipt Date: 20110531
  Transmission Date: 20120403
  Serious: Yes (Other)
  Sender: FDA-Public Use
  Company Number: US201005000637

PATIENT
  Sex: Male
  Weight: 104.3 kg

DRUGS (20)
  1. GLIPIZIDE XL (GLIPIZIDE) [Concomitant]
  2. CYMBALTA [Concomitant]
  3. METFORMIN HCL [Concomitant]
  4. HYDROCHLOROTHIAZIDE [Concomitant]
  5. NORVASC [Concomitant]
  6. ASPIRIN [Concomitant]
  7. NITROGLYCERIN [Concomitant]
  8. VIAGRA [Concomitant]
  9. NOVOLOG [Concomitant]
  10. ACIPHEX [Concomitant]
  11. EXENATIDE UNK STRENGTH PEN, DISPOSABLE DEVICE (EXENATIDE PEN (UNKNOWN [Concomitant]
  12. ENALAPRIL MALEATE [Concomitant]
  13. DOXAZOSIN MESYLATE [Concomitant]
  14. CLARITIN-D [Concomitant]
  15. LIPITOR [Concomitant]
  16. AMBIEN [Concomitant]
  17. LANTUS [Concomitant]
  18. BYETTA [Suspect]
     Indication: DIABETES MELLITUS
     Dosage: 10 MG, QD
     Dates: start: 20050101, end: 20071024
  19. AVANDIA [Concomitant]
  20. NIASPAN ER (NICOTINIC ACID) [Concomitant]

REACTIONS (6)
  - PANCREATITIS [None]
  - GASTRITIS [None]
  - NEPHROPATHY [None]
  - ABDOMINAL DISCOMFORT [None]
  - RENAL FAILURE [None]
  - OFF LABEL USE [None]
